FAERS Safety Report 17606674 (Version 2)
Quarter: 2022Q3

REPORT INFORMATION
  Report Type: Other
  Country: CA (occurrence: CA)
  Receive Date: 20200331
  Receipt Date: 20220823
  Transmission Date: 20221027
  Serious: Yes (Other)
  Sender: FDA-Public Use
  Company Number: CA-TOLMAR, INC.-20CA020570

PATIENT
  Sex: Male

DRUGS (21)
  1. ELIGARD [Suspect]
     Active Substance: LEUPROLIDE ACETATE
     Indication: Prostate cancer
     Dosage: 30 MG, Q 4 MONTH
     Route: 058
     Dates: start: 20080616
  2. ELIGARD [Suspect]
     Active Substance: LEUPROLIDE ACETATE
     Dosage: 30 MG, Q 4 MONTH
     Route: 058
     Dates: start: 20181203
  3. ELIGARD [Suspect]
     Active Substance: LEUPROLIDE ACETATE
     Dosage: 30 MG, Q 4 MONTH
     Route: 058
     Dates: start: 20220813
  4. CORTODERM [HYDROCORTISONE] [Concomitant]
     Indication: Skin lesion
     Dosage: ONE LOCAL APPLICATION ON LESIONS BID, 7 DAYS
     Dates: start: 20190110
  5. DOVONEX [Concomitant]
     Active Substance: CALCIPOTRIENE
     Indication: Skin lesion
     Dosage: ONE LOCAL APPLICATION ON LESIONS BID, 7 DAYS
     Dates: start: 20190110
  6. EFUDEX [Concomitant]
     Active Substance: FLUOROURACIL
     Indication: Skin lesion
     Dosage: ONE LOCAL APPLICATION ON LESIONS BID, 7 DAYS
     Dates: start: 20190110
  7. HYDROMORPHONE [Concomitant]
     Active Substance: HYDROMORPHONE
     Indication: Pain
     Dosage: 1 DOSAGE FORM, Q 4 HR
     Dates: start: 20190110
  8. EZETIMIBE [Concomitant]
     Active Substance: EZETIMIBE
     Indication: Product used for unknown indication
     Dosage: 1 DOSAGE FORM, QD
     Dates: start: 20190109
  9. MYLAN RIVASTIGMINE [RIVASTIGMINE] [Concomitant]
     Indication: Product used for unknown indication
     Dosage: 1 DOSAGE FORM, QD
     Dates: start: 20190109
  10. ALFUZOSIN [Concomitant]
     Active Substance: ALFUZOSIN
     Indication: Product used for unknown indication
     Dosage: 1 DOSAGE FORM, QD AFTER SUPPER
     Dates: start: 20190109
  11. PANTOPRAZOLE SODIUM [Concomitant]
     Active Substance: PANTOPRAZOLE SODIUM
     Indication: Product used for unknown indication
     Dosage: 1 DOSAGE FORM, QD BEFORE BREAKFAST
     Dates: start: 20190109
  12. ALENDRONATE SODIUM [Concomitant]
     Active Substance: ALENDRONATE SODIUM
     Indication: Product used for unknown indication
     Dosage: 1 DOSAGE FORM, 1/WEEK THE MORNING 1/2HR BEFORE FOOD OR MEDICATIONS WITH 250ML OF WATER
     Dates: start: 20190109
  13. FLUOXETINE [Concomitant]
     Active Substance: FLUOXETINE HYDROCHLORIDE
     Indication: Product used for unknown indication
     Dosage: 1 DOSAGE FORM AT BREAKFAST Q 2 DAYS
     Dates: start: 20190102
  14. XARELTO [Concomitant]
     Active Substance: RIVAROXABAN
     Indication: Product used for unknown indication
     Dosage: 1 DOSAGE FORM, QD WHILE EATING
     Dates: start: 20190102
  15. PREGABALIN [Concomitant]
     Active Substance: PREGABALIN
     Indication: Product used for unknown indication
     Dosage: 1 DOSAGE FORM, BID MORNING AND NIGHT
     Dates: start: 20181226
  16. BICALUTAMIDE [Concomitant]
     Active Substance: BICALUTAMIDE
     Indication: Product used for unknown indication
     Dosage: 1 DOSAGE FORM, QD
     Dates: start: 20181226
  17. LESCOL XL [Concomitant]
     Active Substance: FLUVASTATIN SODIUM
     Indication: Product used for unknown indication
     Dosage: 1 DOSAGE FORM, QD
     Dates: start: 20181219
  18. OPUS CAL D 400 [Concomitant]
     Indication: Product used for unknown indication
     Dosage: 1 DOSAGE FORM, BID
     Route: 048
     Dates: start: 20181212
  19. NITROGLYCERIN [Concomitant]
     Active Substance: NITROGLYCERIN
     Indication: Chest pain
     Dosage: 1 SPRAY UNDER THE TONGUE Q 5 MIN FOR CHEST PAIN, MAX 3 PER EVENT
     Route: 060
  20. DOCUSATE CALCIUM [Concomitant]
     Active Substance: DOCUSATE CALCIUM
     Indication: Product used for unknown indication
     Dosage: 2 DOSAGE FORM, QD
     Dates: start: 20180607
  21. OPUS SENNA [Concomitant]
     Indication: Constipation
     Dosage: 2 DOSAGE FORM, BIDMORNING AND NIGHT
     Dates: start: 20180607

REACTIONS (4)
  - Diverticulitis [Unknown]
  - Spinal pain [Unknown]
  - Neck pain [Unknown]
  - Headache [Unknown]
